FAERS Safety Report 7231822-X (Version None)
Quarter: 2011Q1

REPORT INFORMATION
  Report Type: 
  Country: None (occurrence: None)
  Receive Date: 20110118
  Receipt Date: 20110111
  Transmission Date: 20110831
  Serious: Yes (Death, Other)
  Sender: FDA-Public Use
  Company Number: US-TEVA-262692USA

PATIENT
  Sex: Female

DRUGS (2)
  1. ETANERCEPT [Suspect]
     Indication: RHEUMATOID ARTHRITIS
     Route: 058
     Dates: start: 20000101, end: 20030701
  2. METHOTREXATE SOLUTION FOR INJECTION, 25 MG/ML [Suspect]
     Dates: end: 20030701

REACTIONS (1)
  - LUNG NEOPLASM MALIGNANT [None]
